FAERS Safety Report 8632763 (Version 3)
Quarter: 2013Q1

REPORT INFORMATION
  Report Type: Spontaneous
  Country: US (occurrence: US)
  Receive Date: 20120625
  Receipt Date: 20130204
  Transmission Date: 20140127
  Serious: Yes (Hospitalization, Other)
  Sender: FDA-Public Use
  Company Number: US-BAYER-2012-062115

PATIENT
  Age: 39 Year
  Sex: Female
  Weight: 97.51 kg

DRUGS (11)
  1. YAZ [Suspect]
     Indication: CONTRACEPTION
     Dosage: UNK
     Dates: start: 20090608, end: 20090706
  2. YAZ [Suspect]
     Indication: PREMENSTRUAL SYNDROME
  3. KEFLEX [Concomitant]
     Indication: THROMBOPHLEBITIS
  4. DOXYCYCLINE [Concomitant]
     Indication: THROMBOPHLEBITIS
  5. SULFA (NOS) [Concomitant]
     Indication: THROMBOPHLEBITIS
  6. ADVIL [Concomitant]
     Indication: THROMBOPHLEBITIS
  7. MICONAZOLE [Concomitant]
     Indication: FUNGAL INFECTION
  8. VALTREX [Concomitant]
     Dosage: 1 G, UNK
  9. METRONIDAZOLE [Concomitant]
     Dosage: 500 MG, BID
  10. FLUOCINONIDE [FLUOCINONIDE] [Concomitant]
  11. BACTRIM [Concomitant]
     Indication: CELLULITIS

REACTIONS (14)
  - Pulmonary embolism [Recovered/Resolved]
  - Pulmonary embolism [Recovered/Resolved]
  - Thrombophlebitis superficial [Recovering/Resolving]
  - Pulmonary thrombosis [None]
  - Injury [Recovered/Resolved]
  - Pain [None]
  - Emotional distress [None]
  - General physical health deterioration [Recovered/Resolved]
  - Anxiety [None]
  - Pain [Recovered/Resolved]
  - Pain in extremity [Recovered/Resolved]
  - Local swelling [Recovered/Resolved]
  - Dyspnoea [Recovered/Resolved]
  - Dyspnoea exertional [Recovered/Resolved]
